FAERS Safety Report 18566677 (Version 1)
Quarter: 2020Q4

REPORT INFORMATION
  Report Type: Spontaneous
  Country: US (occurrence: US)
  Receive Date: 20201201
  Receipt Date: 20201201
  Transmission Date: 20210114
  Serious: No
  Sender: FDA-Public Use
  Company Number: US-BAYER-2020-255913

PATIENT

DRUGS (2)
  1. CLARITIN LIQUI-GELS [Suspect]
     Active Substance: LORATADINE
     Indication: PARANASAL SINUS HYPERSECRETION
     Dosage: UNK
     Route: 048
  2. CLARITIN [Suspect]
     Active Substance: LORATADINE
     Indication: SINUSITIS
     Dosage: UNK
     Route: 065

REACTIONS (4)
  - Drug effective for unapproved indication [Unknown]
  - Off label use [Unknown]
  - COVID-19 [None]
  - Product use in unapproved indication [Unknown]
